FAERS Safety Report 4600156-1 (Version None)
Quarter: 2005Q1

REPORT INFORMATION
  Report Type: 
  Country: None (occurrence: None)
  Receive Date: 20050303
  Receipt Date: 20050223
  Transmission Date: 20050727
  Serious: Yes (Other)
  Sender: FDA-Public Use
  Company Number: 05-0027-PO

PATIENT
  Sex: Female

DRUGS (1)
  1. MEFENAMIC ACID [Suspect]
     Indication: MENORRHAGIA
     Dosage: 500 MG

REACTIONS (2)
  - FACE OEDEMA [None]
  - THROAT TIGHTNESS [None]
